FAERS Safety Report 7027641-X (Version None)
Quarter: 2010Q4

REPORT INFORMATION
  Report Type: 
  Country: None (occurrence: None)
  Receive Date: 20101004
  Receipt Date: 20100924
  Transmission Date: 20110411
  Serious: Yes (Hospitalization, Other)
  Sender: FDA-Public Use
  Company Number: US-WYE-H17752910

PATIENT
  Age: 61 Year
  Sex: Male

DRUGS (2)
  1. TEMSIROLIMUS [Suspect]
     Indication: SQUAMOUS CELL CARCINOMA
     Route: 042
     Dates: start: 20100621
  2. DOXORUBICIN HYDROCHLORIDE [Suspect]
     Indication: SQUAMOUS CELL CARCINOMA
     Route: 042
     Dates: start: 20100621

REACTIONS (9)
  - DECREASED APPETITE [None]
  - FATIGUE [None]
  - HAEMOGLOBIN DECREASED [None]
  - INSOMNIA [None]
  - LYMPHOPENIA [None]
  - NAUSEA [None]
  - PAIN IN JAW [None]
  - SWELLING [None]
  - VOMITING [None]
